FAERS Safety Report 7007251-0 (Version None)
Quarter: 2010Q3

REPORT INFORMATION
  Report Type: 
  Country: None (occurrence: None)
  Receive Date: 20100920
  Receipt Date: 20100915
  Transmission Date: 20110219
  Serious: Yes (Other)
  Sender: FDA-Public Use
  Company Number: A0881212A

PATIENT
  Age: 45 Year
  Sex: Female

DRUGS (1)
  1. UREA HYDROGEN PEROXIDE DROP (S) (UREA HYDROGEN PEROXIDE) [Suspect]
     Dosage: / AURAL

REACTIONS (3)
  - DEAFNESS [None]
  - DRUG ADMINISTRATION ERROR [None]
  - EAR DISCOMFORT [None]
